FAERS Safety Report 7192936-6 (Version None)
Quarter: 2010Q4

REPORT INFORMATION
  Report Type: 
  Country: None (occurrence: None)
  Receive Date: 20101223
  Receipt Date: 20101214
  Transmission Date: 20110411
  Serious: Yes (Death, Other)
  Sender: FDA-Public Use
  Company Number: JP-GENZYME-THYM-1001718

PATIENT
  Sex: Male
  Weight: 57 kg

DRUGS (12)
  1. THYMOGLOBULIN [Suspect]
     Indication: BONE MARROW CONDITIONING REGIMEN
     Dosage: 87.5 MG, QD
     Route: 042
     Dates: start: 20091201, end: 20091201
  2. FLUDARABINE PHOSPHATE [Concomitant]
     Indication: BONE MARROW CONDITIONING REGIMEN
     Dosage: UNK
     Dates: start: 20091125, end: 20091130
  3. BUSULFAN [Concomitant]
     Indication: BONE MARROW CONDITIONING REGIMEN
     Dosage: UNK
     Dates: start: 20091127, end: 20091128
  4. LENOGRASTIM [Concomitant]
     Indication: INFECTION PROPHYLAXIS
     Dosage: UNK
     Dates: start: 20091209, end: 20100127
  5. METHOTREXATE [Concomitant]
     Indication: PROPHYLAXIS AGAINST GRAFT VERSUS HOST DISEASE
     Dosage: UNK
     Dates: start: 20091204, end: 20091204
  6. METHOTREXATE [Concomitant]
     Dosage: UNK
     Dates: start: 20091206, end: 20091206
  7. METHOTREXATE [Concomitant]
     Dosage: UNK
     Dates: start: 20091209, end: 20091209
  8. METHOTREXATE [Concomitant]
     Dosage: UNK
     Dates: start: 20091214, end: 20091214
  9. BACTRIM [Concomitant]
     Indication: INFECTION PROPHYLAXIS
     Dosage: UNK
     Dates: start: 20091124, end: 20091201
  10. VALPROATE SODIUM [Concomitant]
     Indication: CONVULSION PROPHYLAXIS
     Dosage: UNK
     Dates: start: 20091125, end: 20091201
  11. TACROLIMUS [Concomitant]
     Indication: PROPHYLAXIS AGAINST GRAFT VERSUS HOST DISEASE
     Dosage: UNK
     Dates: start: 20091202, end: 20091220
  12. TOTAL BODY IRRADIATION [Concomitant]
     Dosage: UNK
     Dates: start: 20091202, end: 20091202

REACTIONS (12)
  - BRONCHOPULMONARY ASPERGILLOSIS [None]
  - CYTOMEGALOVIRUS INFECTION [None]
  - DIALYSIS [None]
  - HEPATIC FAILURE [None]
  - MULTI-ORGAN FAILURE [None]
  - PNEUMONIA [None]
  - PNEUMONIA ADENOVIRAL [None]
  - PNEUMONIA HERPES VIRAL [None]
  - PYREXIA [None]
  - RESPIRATORY FAILURE [None]
  - THROMBOTIC MICROANGIOPATHY [None]
  - TRANSPLANT FAILURE [None]
